FAERS Safety Report 9565028 (Version 1)
Quarter: 2013Q3

REPORT INFORMATION
  Report Type: Report from Study
  Country: DE (occurrence: DE)
  Receive Date: 20130930
  Receipt Date: 20130930
  Transmission Date: 20140515
  Serious: Yes (Hospitalization)
  Sender: FDA-Public Use
  Company Number: DE-ASTELLAS-2013EU008210

PATIENT
  Sex: Male

DRUGS (3)
  1. XTANDI [Suspect]
     Indication: PROSTATE CANCER
     Dosage: 1 DF, UID/QD
     Route: 048
     Dates: start: 201307, end: 201308
  2. PREDNISOLON                        /00016201/ [Concomitant]
     Dosage: 5 MG, UNKNOWN/D
     Route: 065
  3. CALCIUM [Concomitant]
     Dosage: UNK
     Route: 065

REACTIONS (6)
  - Hypersensitivity [Recovering/Resolving]
  - Sunburn [Recovering/Resolving]
  - Swelling face [Recovering/Resolving]
  - Local swelling [Recovering/Resolving]
  - Anaphylactic shock [Recovering/Resolving]
  - Cardiovascular disorder [Unknown]
